FAERS Safety Report 18074922 (Version 1)
Quarter: 2020Q3

REPORT INFORMATION
  Report Type: Spontaneous
  Country: US (occurrence: US)
  Receive Date: 20200727
  Receipt Date: 20200727
  Transmission Date: 20201103
  Serious: No
  Sender: FDA-Public Use
  Company Number: US-ABBVIE-19K-163-2955714-00

PATIENT
  Sex: Female

DRUGS (1)
  1. SYNTHROID [Suspect]
     Active Substance: LEVOTHYROXINE SODIUM
     Indication: PRODUCT USED FOR UNKNOWN INDICATION
     Route: 048

REACTIONS (9)
  - Blood glucose decreased [Unknown]
  - Dizziness [Unknown]
  - Dry skin [Unknown]
  - Product prescribing error [Unknown]
  - Somnolence [Unknown]
  - Adverse drug reaction [Unknown]
  - Autoimmune thyroiditis [Unknown]
  - Hunger [Unknown]
  - Weight decreased [Unknown]
